FAERS Safety Report 4885959-0 (Version None)
Quarter: 2006Q1

REPORT INFORMATION
  Report Type: 
  Country: None (occurrence: None)
  Receive Date: 20060117
  Receipt Date: 20060106
  Transmission Date: 20060701
  Serious: Yes (Death, Hospitalization)
  Sender: FDA-Public Use
  Company Number: 2006JP000047

PATIENT
  Age: 71 Year
  Sex: Male

DRUGS (7)
  1. PROGRAF [Suspect]
     Indication: RHEUMATOID ARTHRITIS
     Dosage: 2 MG, UID/QD, ORAL
     Route: 048
  2. SOLU-MEDROL [Concomitant]
  3. ACE INHIBITOR NOS [Concomitant]
  4. ALLOPURINOL [Concomitant]
  5. ISOSORBIDE MONONITRATE [Concomitant]
  6. TICLOPIDINE HCL [Concomitant]
  7. ISOSORBIDE DINITRATE [Concomitant]

REACTIONS (3)
  - CHOKING SENSATION [None]
  - INTERSTITIAL LUNG DISEASE [None]
  - MOVEMENT DISORDER [None]
